FAERS Safety Report 5739378-5 (Version None)
Quarter: 2008Q2

REPORT INFORMATION
  Report Type: 
  Country: None (occurrence: None)
  Receive Date: 20080515
  Receipt Date: 20080507
  Transmission Date: 20081010
  Serious: Yes (Hospitalization, Other)
  Sender: FDA-Public Use
  Company Number: US-PFIZER INC-2006090677

PATIENT
  Sex: Male
  Weight: 104.3 kg

DRUGS (2)
  1. BEXTRA [Suspect]
     Indication: ARTHRITIS
  2. CELEBREX [Suspect]
     Indication: ARTHRITIS
     Dosage: FREQ:2 OR 3 TIMES A DAY

REACTIONS (8)
  - ABDOMINAL PAIN UPPER [None]
  - ARTERIAL OCCLUSIVE DISEASE [None]
  - CEREBROVASCULAR ACCIDENT [None]
  - CHEST PAIN [None]
  - HEART RATE INCREASED [None]
  - HYPOAESTHESIA [None]
  - MYOCARDIAL INFARCTION [None]
  - TRANSIENT ISCHAEMIC ATTACK [None]
